FAERS Safety Report 10038984 (Version 1)
Quarter: 2014Q1

REPORT INFORMATION
  Report Type: Spontaneous
  Country: US (occurrence: None)
  Receive Date: 20140306
  Receipt Date: 20140306
  Transmission Date: 20141002
  Serious: Yes (Other)
  Sender: FDA-Public Use
  Company Number: 163-21880-13061450

PATIENT
  Age: 63 Year
  Sex: Female

DRUGS (25)
  1. REVLIMID (LENALIDOMIDE) (15 MILLIGRAM, CAPSULES) [Suspect]
     Indication: PLASMA CELL MYELOMA
     Dosage: 15 MG, 14 IN 28 D, PO
     Route: 048
     Dates: start: 20130417
  2. SINGULAIR (MONTELUKAST SODIUM) [Concomitant]
  3. DEXAMETHASONE (DEXAMETHASONE) [Concomitant]
  4. ZEMPLAR (PARICALCITOL) [Concomitant]
  5. ACYCLOVIR (ACICLOVIR) [Concomitant]
  6. TOPROL XL (METOPROLOL SUCCINATE) [Concomitant]
  7. NEXIUM (ESOMEPRAZOLE) [Concomitant]
  8. NEPHROCAPS (NEPHROCAPS) [Concomitant]
  9. CRESTOR (ROSUVASTATIN) [Concomitant]
  10. POTASSIUM (POTASSIUM) [Concomitant]
  11. FLEXERIL (CYCLOBENZAPRINE HYDROCHLORIDE) [Concomitant]
  12. ATIVAN (LORAZEPAM) [Concomitant]
  13. CARDURA (DOXAZOSIN MESILATE) [Concomitant]
  14. TRAMADOL (TRAMADOL) [Concomitant]
  15. OXYCODONE (OXYCODONE) [Concomitant]
  16. RENAL CAPS (NEPHROVITE) [Concomitant]
  17. LIDODERM (LIDOCAINE) [Concomitant]
  18. SODIUM BICARBONATE (SODIUM BICARBONATE) [Concomitant]
  19. VENTOLIN (SALBUTAMOL) [Concomitant]
  20. DULCOLAX (BISACODYL) [Concomitant]
  21. SSS NUTRITIONAL SUPPLEMENT (OTHER NUTRIENTS) [Concomitant]
  22. VIT D3 [Concomitant]
  23. TYLENOL (PARACETAMOL) [Concomitant]
  24. VIT D (ERGOCALCIFEROL) [Concomitant]
  25. ASA (ACETYLSALICYLIC ACID) [Concomitant]

REACTIONS (3)
  - Renal failure [None]
  - Nausea [None]
  - Sinusitis [None]
